FAERS Safety Report 8933290 (Version 5)
Quarter: 2013Q1

REPORT INFORMATION
  Report Type: Spontaneous
  Country: GB (occurrence: GB)
  Receive Date: 20121128
  Receipt Date: 20130117
  Transmission Date: 20140127
  Serious: Yes (Congenital Anomaly, Other)
  Sender: FDA-Public Use
  Company Number: GB-PFIZER INC-2010070306

PATIENT
  Sex: Female

DRUGS (5)
  1. LYRICA [Suspect]
     Indication: PAIN
     Dosage: 2 DF, 2X/DAY
     Route: 064
     Dates: start: 20080815
  2. OMEPRAZOLE [Suspect]
     Indication: PROPHYLAXIS AGAINST GASTROINTESTINAL ULCER
     Dosage: 20 MG, 1X/DAY
     Route: 064
     Dates: start: 20081016
  3. HYDROXOCOBALAMIN [Suspect]
     Indication: VITAMIN B12 DEFICIENCY
     Dosage: 3 DF, MONTHLY
     Route: 064
     Dates: start: 20091216
  4. CO-CODAMOL [Suspect]
     Indication: PAIN
     Dosage: 30/500, 2 TABLETS AS NEEDED
     Route: 064
     Dates: start: 20090106
  5. FOLIC ACID [Suspect]
     Indication: PREGNANCY
     Dosage: 1 DF, 1X/DAY
     Route: 064
     Dates: start: 200905

REACTIONS (3)
  - Maternal exposure timing unspecified [Unknown]
  - Developmental hip dysplasia [Unknown]
  - Pelvic deformity [Unknown]
